FAERS Safety Report 5713192-9 (Version None)
Quarter: 2008Q2

REPORT INFORMATION
  Report Type: 
  Country: None (occurrence: None)
  Receive Date: 20080422
  Receipt Date: 19901128
  Transmission Date: 20081010
  Serious: Yes (Death)
  Sender: FDA-Public Use
  Company Number: AU-ROCHE-17088

PATIENT
  Sex: Male

DRUGS (1)
  1. GANCICLOVIR SODIUM [Suspect]
     Indication: DRUG USE FOR UNKNOWN INDICATION
     Route: 042
     Dates: start: 19881105, end: 19881109

REACTIONS (1)
  - DEATH [None]
